FAERS Safety Report 24560837 (Version 1)
Quarter: 2024Q4

REPORT INFORMATION
  Report Type: Spontaneous
  Country: GB (occurrence: GB)
  Receive Date: 20241029
  Receipt Date: 20241029
  Transmission Date: 20250115
  Serious: Yes (Life-Threatening, Disabling, Other)
  Sender: PFIZER
  Company Number: None

PATIENT
  Age: 54 Year
  Sex: Female
  Weight: 54 kg

DRUGS (1)
  1. PROVERA [Suspect]
     Active Substance: MEDROXYPROGESTERONE ACETATE
     Indication: Hormone replacement therapy
     Dosage: 10 MG, 1X/DAY
     Dates: end: 20240915

REACTIONS (7)
  - Suicidal ideation [Recovering/Resolving]
  - Pyrexia [Recovered/Resolved]
  - Myalgia [Recovered/Resolved]
  - Fatigue [Recovering/Resolving]
  - Medication error [Unknown]
  - Influenza like illness [Unknown]
  - Crying [Unknown]

NARRATIVE: CASE EVENT DATE: 20240908
